FAERS Safety Report 15411231 (Version 1)
Quarter: 2018Q3

REPORT INFORMATION
  Report Type: Spontaneous
  Country: US (occurrence: US)
  Receive Date: 20180919
  Receipt Date: 20180919
  Transmission Date: 20181010
  Serious: Yes (Other)
  Sender: FDA-Public Use
  Company Number: None

PATIENT
  Age: 54 Year
  Sex: Female
  Weight: 117.9 kg

DRUGS (1)
  1. CONTRAVE [Suspect]
     Active Substance: BUPROPION HYDROCHLORIDE\NALTREXONE HYDROCHLORIDE
     Indication: WEIGHT CONTROL
     Dosage: ?          QUANTITY:2 DF DOSAGE FORM;?
     Route: 048
     Dates: start: 20180401, end: 20180810

REACTIONS (13)
  - Agitation [None]
  - Decreased appetite [None]
  - Electrocardiogram abnormal [None]
  - Memory impairment [None]
  - Blood glucose decreased [None]
  - Cardiac valve disease [None]
  - Job dissatisfaction [None]
  - Tourette^s disorder [None]
  - Energy increased [None]
  - Dysmorphism [None]
  - Irritability [None]
  - Aggression [None]
  - Hypophagia [None]

NARRATIVE: CASE EVENT DATE: 20180810
